FAERS Safety Report 6929276-3 (Version None)
Quarter: 2010Q3

REPORT INFORMATION
  Report Type: 
  Country: None (occurrence: None)
  Receive Date: 20100811
  Receipt Date: 20100730
  Transmission Date: 20110219
  Serious: Yes (Disabling)
  Sender: FDA-Public Use
  Company Number: AUR-APL-2010-01931

PATIENT
  Age: 73 Year
  Sex: Female
  Weight: 65 kg

DRUGS (4)
  1. SIMVASTATIN [Suspect]
     Indication: CEREBROVASCULAR ACCIDENT PROPHYLAXIS
     Dosage: 40MG, ORAL
     Route: 048
     Dates: start: 20080301, end: 20100601
  2. FLECAINIDE ACETATE [Concomitant]
  3. LISINOPRIL [Concomitant]
  4. WARFARIN [Concomitant]

REACTIONS (1)
  - FATIGUE [None]
